FAERS Safety Report 7302249-7 (Version None)
Quarter: 2011Q1

REPORT INFORMATION
  Report Type: 
  Country: None (occurrence: None)
  Receive Date: 20110218
  Receipt Date: 20110214
  Transmission Date: 20110831
  Serious: Yes (Other)
  Sender: FDA-Public Use
  Company Number: US-ABBOTT-11P-163-0705012-00

PATIENT
  Sex: Male
  Weight: 52.21 kg

DRUGS (2)
  1. DEPAKOTE ER [Suspect]
     Indication: CONVULSION
     Dates: start: 20101201
  2. DEPAKOTE ER [Suspect]
     Indication: BIPOLAR DISORDER

REACTIONS (2)
  - CONVULSION [None]
  - DRUG LEVEL DECREASED [None]
